FAERS Safety Report 5615755-8 (Version None)
Quarter: 2008Q1

REPORT INFORMATION
  Report Type: 
  Country: None (occurrence: None)
  Receive Date: 20080201
  Receipt Date: 20080121
  Transmission Date: 20080703
  Serious: Yes (Other)
  Sender: FDA-Public Use
  Company Number: 100#08#2008-00391

PATIENT
  Age: 75 Year
  Sex: Female

DRUGS (2)
  1. WARFARIN SODIUM [Suspect]
     Indication: DEEP VEIN THROMBOSIS
  2. LOVENOX [Suspect]
     Indication: DEEP VEIN THROMBOSIS

REACTIONS (4)
  - HAEMATOMA [None]
  - HYPOTENSION [None]
  - MUSCLE HAEMORRHAGE [None]
  - RETROPERITONEAL HAEMATOMA [None]
